FAERS Safety Report 9344722 (Version 1)
Quarter: 2013Q2

REPORT INFORMATION
  Report Type: Spontaneous
  Country: IT (occurrence: IT)
  Receive Date: 20130612
  Receipt Date: 20130612
  Transmission Date: 20140414
  Serious: Yes (Other)
  Sender: FDA-Public Use
  Company Number: IT-PFIZER INC-2013173214

PATIENT
  Age: 5 Year
  Sex: Male
  Weight: 18 kg

DRUGS (7)
  1. ARACYTIN [Suspect]
     Indication: BONE MARROW TRANSPLANT
     Dosage: 3 G, 1X/DAY
     Route: 042
     Dates: start: 20130312
  2. BETAMETHASONE [Concomitant]
     Indication: PREMEDICATION
     Dosage: 2 MG, UNK
     Route: 042
     Dates: start: 20130312, end: 20130319
  3. ONDANSETRON [Concomitant]
     Indication: PREMEDICATION
     Dosage: 12 MG, UNK
     Route: 042
     Dates: start: 20130312, end: 20130317
  4. AMPICILLIN, SULBACTAM [Concomitant]
     Indication: FEBRILE NEUTROPENIA
     Dosage: 1125 MG, UNK
     Route: 042
     Dates: start: 20130315, end: 20130317
  5. DEFIBROTIDE [Concomitant]
     Indication: VENOOCCLUSIVE LIVER DISEASE
     Dosage: 800 MG, UNK
     Route: 042
     Dates: start: 20130312, end: 20130418
  6. DEXAMETHASONE [Concomitant]
     Indication: PREMEDICATION
     Dosage: 3 GTT, UNK
     Route: 047
     Dates: start: 20130312, end: 20130317
  7. URSACOL [Concomitant]
     Indication: VENOOCCLUSIVE LIVER DISEASE
     Dosage: 750 MG, UNK
     Route: 048
     Dates: start: 20130312, end: 20130602

REACTIONS (2)
  - Keratitis [Recovered/Resolved]
  - Erythema [Recovered/Resolved]
